FAERS Safety Report 15994467 (Version 2)
Quarter: 2019Q2

REPORT INFORMATION
  Report Type: Spontaneous
  Country: GB (occurrence: GB)
  Receive Date: 20190222
  Receipt Date: 20190531
  Transmission Date: 20190711
  Serious: Yes (Other)
  Sender: FDA-Public Use
  Company Number: GB-AUROBINDO-AUR-APL-2019-008821

PATIENT

DRUGS (1)
  1. OLANZAPINE TABLET [Suspect]
     Active Substance: OLANZAPINE
     Indication: PRODUCT USED FOR UNKNOWN INDICATION
     Dosage: 10 MILLIGRAM DAILY
     Route: 065

REACTIONS (38)
  - Somnolence [Unknown]
  - Urinary retention [Unknown]
  - Back pain [Unknown]
  - Depressed mood [Unknown]
  - Nervous system disorder [Unknown]
  - Eye movement disorder [Unknown]
  - Neck pain [Unknown]
  - Motor dysfunction [Unknown]
  - Hypersomnia [Unknown]
  - Increased appetite [Unknown]
  - Diarrhoea [Unknown]
  - Glassy eyes [Unknown]
  - Gastrointestinal disorder [Unknown]
  - Pain in extremity [Unknown]
  - Lethargy [Unknown]
  - Oropharyngeal pain [Unknown]
  - Hypopnoea [Unknown]
  - Headache [Unknown]
  - Vomiting [Unknown]
  - Loss of personal independence in daily activities [Unknown]
  - Apathy [Unknown]
  - Ocular hyperaemia [Unknown]
  - Malaise [Unknown]
  - Fatigue [Unknown]
  - Fall [Unknown]
  - Emotional poverty [Unknown]
  - Hyperhidrosis [Unknown]
  - Cognitive disorder [Unknown]
  - Eye swelling [Unknown]
  - Dyspnoea [Unknown]
  - Chest pain [Unknown]
  - Bowel movement irregularity [Unknown]
  - Tonsillitis [Unknown]
  - Feeling abnormal [Unknown]
  - Sinus disorder [Unknown]
  - Muscle twitching [Unknown]
  - Weight increased [Unknown]
  - Cold-stimulus headache [Unknown]
